FAERS Safety Report 9132278 (Version 2)
Quarter: 2013Q2

REPORT INFORMATION
  Report Type: Spontaneous
  Country: FR (occurrence: FR)
  Receive Date: 20130301
  Receipt Date: 20130424
  Transmission Date: 20140414
  Serious: Yes (Hospitalization)
  Sender: FDA-Public Use
  Company Number: FR-009507513-1302FRA011961

PATIENT
  Age: 47 Year
  Sex: Female

DRUGS (3)
  1. STROMECTOL [Suspect]
     Indication: ACARODERMATITIS
     Dosage: 3 DF, ONCE
     Route: 048
     Dates: start: 20130123, end: 20130123
  2. STROMECTOL [Suspect]
     Dosage: 3 DF, ONCE
     Route: 049
     Dates: start: 20130130, end: 20130130
  3. SPREGAL [Suspect]
     Indication: ACARODERMATITIS
     Dosage: UNK
     Route: 061
     Dates: start: 20130123, end: 20130123

REACTIONS (3)
  - Muscular weakness [Recovered/Resolved]
  - Paraesthesia [Recovered/Resolved]
  - Hypoaesthesia [Recovered/Resolved]
